FAERS Safety Report 14676386 (Version 1)
Quarter: 2018Q1

REPORT INFORMATION
  Report Type: Spontaneous
  Country: US (occurrence: US)
  Receive Date: 20180323
  Receipt Date: 20180323
  Transmission Date: 20180509
  Serious: Yes (Hospitalization, Disabling)
  Sender: FDA-Public Use
  Company Number: None

PATIENT

DRUGS (3)
  1. MINERALS [Concomitant]
     Active Substance: MINERALS
  2. VITAMINS [Concomitant]
     Active Substance: VITAMINS
  3. GLIPIZIDE. [Suspect]
     Active Substance: GLIPIZIDE
     Indication: BLOOD GLUCOSE INCREASED
     Dosage: 1 TAB BY MOUTH MORNING BEFORE BRKFST
     Route: 048

REACTIONS (3)
  - Contusion [None]
  - Urethral disorder [None]
  - Post procedural complication [None]

NARRATIVE: CASE EVENT DATE: 2018
